FAERS Safety Report 16988380 (Version 1)
Quarter: 2019Q4

REPORT INFORMATION
  Report Type: Spontaneous
  Country: BR (occurrence: BR)
  Receive Date: 20191104
  Receipt Date: 20191104
  Transmission Date: 20200122
  Serious: Yes (Other)
  Sender: FDA-Public Use
  Company Number: BR-EMD SERONO-9125471

PATIENT
  Sex: Female

DRUGS (1)
  1. REBIF [Suspect]
     Active Substance: INTERFERON BETA-1A
     Indication: MULTIPLE SCLEROSIS
     Dates: start: 2014, end: 201909

REACTIONS (4)
  - Multiple sclerosis relapse [Unknown]
  - Loss of consciousness [Unknown]
  - Amnesia [Unknown]
  - Headache [Unknown]

NARRATIVE: CASE EVENT DATE: 2017
